FAERS Safety Report 10198829 (Version 1)
Quarter: 2014Q2

REPORT INFORMATION
  Report Type: Spontaneous
  Country: US (occurrence: US)
  Receive Date: 20140527
  Receipt Date: 20140527
  Transmission Date: 20141212
  Serious: No
  Sender: FDA-Public Use
  Company Number: US-NOVEN-13US007723

PATIENT
  Age: 9 Year
  Sex: Male

DRUGS (15)
  1. DAYTRANA [Suspect]
     Indication: ATTENTION DEFICIT/HYPERACTIVITY DISORDER
     Dosage: 10 MG DAILY FOR NINE HOURS
     Route: 062
     Dates: start: 20130828, end: 20130916
  2. STRATTERA [Concomitant]
     Indication: ATTENTION DEFICIT/HYPERACTIVITY DISORDER
     Dosage: UNK
  3. TENEX [Concomitant]
     Indication: HYPERTENSION
     Dosage: UNK
  4. MIRALAX [Concomitant]
     Indication: CONSTIPATION
     Dosage: UNK
  5. RISPERDAL [Concomitant]
     Indication: AUTISM
     Dosage: 1 MG, UNK
  6. NASONEX [Concomitant]
     Indication: HYPERSENSITIVITY
     Dosage: UNK
     Route: 045
  7. PULMICORT [Concomitant]
     Indication: ASTHMA
     Dosage: UNK
     Route: 055
  8. ACIDOPHILUS [Concomitant]
     Indication: PROPHYLAXIS
     Dosage: UNK
  9. XOPENEX [Concomitant]
     Indication: ASTHMA
     Dosage: UNK
     Route: 055
  10. TYLENOL [Concomitant]
     Indication: PAIN
     Dosage: UNK
  11. TYLENOL [Concomitant]
     Indication: PYREXIA
  12. IBUPROFEN [Concomitant]
     Indication: PAIN
     Dosage: UNK
  13. IBUPROFEN [Concomitant]
     Indication: PYREXIA
  14. ROBITUSSIN [Concomitant]
     Indication: COUGH
     Dosage: UNK
  15. KIDS ESSENTIALS WITH FIBER [Concomitant]
     Indication: NUTRITIONAL SUPPLEMENTATION
     Dosage: UNK

REACTIONS (3)
  - Abdominal distension [Recovered/Resolved]
  - Abdominal tenderness [Recovered/Resolved]
  - Ileus [Recovering/Resolving]
